FAERS Safety Report 17543326 (Version 4)
Quarter: 2021Q1

REPORT INFORMATION
  Report Type: Spontaneous
  Country: US (occurrence: US)
  Receive Date: 20200316
  Receipt Date: 20210118
  Transmission Date: 20210419
  Serious: Yes (Hospitalization, Other)
  Sender: FDA-Public Use
  Company Number: US-LUPIN PHARMACEUTICALS INC.-2020-01346

PATIENT
  Age: 75 Year
  Sex: Male

DRUGS (6)
  1. GABAPENTIN. [Suspect]
     Active Substance: GABAPENTIN
     Dosage: 1200 MILLIGRAM, QD (RESTARTED)
     Route: 065
  2. MORPHINE [Concomitant]
     Active Substance: MORPHINE
     Indication: PAIN
     Dosage: 40 MILLIGRAM, UNK (DAY 1)
     Route: 048
  3. MORPHINE [Concomitant]
     Active Substance: MORPHINE
     Dosage: 15 MILLIGRAM, UNK (DAY 3)
     Route: 048
  4. CEPHALEXIN [CEFALEXIN] [Concomitant]
     Active Substance: CEPHALEXIN
     Indication: INFECTION PROPHYLAXIS
     Dosage: UNK
     Route: 065
  5. MORPHINE [Concomitant]
     Active Substance: MORPHINE
     Dosage: 63 MILLIGRAM, UNK (DAY 2)
     Route: 048
  6. GABAPENTIN. [Suspect]
     Active Substance: GABAPENTIN
     Indication: NEUROPATHY PERIPHERAL
     Dosage: 1200 MILLIGRAM, QD
     Route: 065

REACTIONS (8)
  - Toxicity to various agents [Recovering/Resolving]
  - Hypotension [Unknown]
  - Lethargy [Unknown]
  - Withdrawal syndrome [Recovered/Resolved]
  - Delirium [Recovered/Resolved]
  - Blood creatinine increased [Recovering/Resolving]
  - Acute kidney injury [Recovering/Resolving]
  - Hallucination, visual [Unknown]
